FAERS Safety Report 7672151-X (Version None)
Quarter: 2011Q3

REPORT INFORMATION
  Report Type: 
  Country: None (occurrence: None)
  Receive Date: 20110809
  Receipt Date: 20110727
  Transmission Date: 20111222
  Serious: Yes (Other)
  Sender: FDA-Public Use
  Company Number: PHHY2011IT65884

PATIENT
  Sex: Male

DRUGS (12)
  1. ACE INHIBITOR NOS [Concomitant]
  2. OXYCODONE HCL [Concomitant]
  3. ASPIRIN [Concomitant]
  4. RAMIPRIL [Concomitant]
     Dosage: 5 MG, UNK
  5. LANSOPRAZOLE [Concomitant]
     Dosage: 30 MG, UNK
  6. HYDROCHLOROTHIAZID [Concomitant]
  7. INSULIN [Concomitant]
  8. TASIGNA [Suspect]
     Indication: CHRONIC MYELOID LEUKAEMIA
     Dosage: 400 MG, DAILY
     Route: 048
     Dates: start: 20090911
  9. CARVEDILOL [Concomitant]
     Dosage: 6.25 MG, UNK
  10. ORAL ANTIDIABETICS [Concomitant]
  11. SIMVASTATIN [Concomitant]
     Dosage: UNK
  12. LASIX [Concomitant]
     Dosage: 25 MG, UNK

REACTIONS (8)
  - DYSARTHRIA [None]
  - PAIN [None]
  - HEMIPLEGIA [None]
  - HYPERGLYCAEMIA [None]
  - PERIPHERAL ISCHAEMIA [None]
  - SKIN NECROSIS [None]
  - HYPOTHERMIA [None]
  - CONCOMITANT DISEASE AGGRAVATED [None]
